FAERS Safety Report 10246210 (Version 2)
Quarter: 2014Q3

REPORT INFORMATION
  Report Type: Spontaneous
  Country: US (occurrence: US)
  Receive Date: 20140619
  Receipt Date: 20140716
  Transmission Date: 20150326
  Serious: Yes (Other)
  Sender: FDA-Public Use
  Company Number: US-BAYER-2014-089593

PATIENT
  Age: 44 Year
  Sex: Female
  Weight: 99.77 kg

DRUGS (1)
  1. YAZ [Suspect]
     Active Substance: DROSPIRENONE\ETHINYL ESTRADIOL
     Dosage: UNK
     Dates: start: 200606, end: 20060817

REACTIONS (7)
  - Pain [None]
  - Anxiety [None]
  - Injury [None]
  - Deep vein thrombosis [None]
  - General physical health deterioration [None]
  - Pulmonary embolism [None]
  - Emotional distress [None]

NARRATIVE: CASE EVENT DATE: 200608
